FAERS Safety Report 8891078 (Version 2)
Quarter: 2013Q1

REPORT INFORMATION
  Report Type: Report from Study
  Country: FR (occurrence: FR)
  Receive Date: 20121107
  Receipt Date: 20130301
  Transmission Date: 20140127
  Serious: Yes (Hospitalization, Other)
  Sender: FDA-Public Use
  Company Number: FR-BRISTOL-MYERS SQUIBB COMPANY-17080698

PATIENT
  Age: 62 Year
  Sex: Male
  Weight: 78 kg

DRUGS (7)
  1. CISPLATIN [Suspect]
     Indication: NON-SMALL CELL LUNG CANCER STAGE IV
     Route: 065
     Dates: start: 20110308
  2. GEMZAR [Suspect]
     Indication: NON-SMALL CELL LUNG CANCER STAGE IV
     Dosage: 8MAR11-29MAR12:388 DAYS;INTER-5APR11?27APR11-ONG.
     Route: 065
     Dates: start: 20110308
  3. CRESTOR [Concomitant]
     Dates: start: 2000
  4. TEMERIT [Concomitant]
     Dates: start: 2011
  5. ASPEGIC [Concomitant]
     Dates: start: 1998, end: 201104
  6. CORTANCYL [Concomitant]
     Dates: start: 2000, end: 201104
  7. DOMPERIDONE [Concomitant]
     Dates: start: 20110308

REACTIONS (3)
  - Diarrhoea [Recovered/Resolved]
  - Nausea [Unknown]
  - Abdominal pain upper [Unknown]
